FAERS Safety Report 16311047 (Version 2)
Quarter: 2021Q1

REPORT INFORMATION
  Report Type: Spontaneous
  Country: US (occurrence: US)
  Receive Date: 20190514
  Receipt Date: 20210218
  Transmission Date: 20210419
  Serious: Yes (Hospitalization, Other)
  Sender: FDA-Public Use
  Company Number: US-ASTRAZENECA-2019SE67542

PATIENT
  Age: 30 Year
  Sex: Male
  Weight: 56.7 kg

DRUGS (99)
  1. DOXYCYCLINE. [Concomitant]
     Active Substance: DOXYCYCLINE
  2. ULTRAM [Concomitant]
     Active Substance: TRAMADOL HYDROCHLORIDE
  3. CARBAMAZEPINE. [Concomitant]
     Active Substance: CARBAMAZEPINE
  4. PNEUMOVAX 23 [Concomitant]
     Active Substance: PNEUMOCOCCAL VACCINE, POLYVALENT 23
  5. INDOMETHACIN. [Concomitant]
     Active Substance: INDOMETHACIN
  6. METHADONE [Concomitant]
     Active Substance: METHADONE HYDROCHLORIDE
  7. PROTONIX [Suspect]
     Active Substance: PANTOPRAZOLE SODIUM
     Route: 065
     Dates: start: 198909, end: 201303
  8. ASPIRIN. [Concomitant]
     Active Substance: ASPIRIN
     Indication: PAIN
  9. ZANTAC [Concomitant]
     Active Substance: RANITIDINE HYDROCHLORIDE
  10. ATENOLOL. [Concomitant]
     Active Substance: ATENOLOL
  11. PENICILLIN VK [Concomitant]
     Active Substance: PENICILLIN V POTASSIUM
  12. MEDROL [Concomitant]
     Active Substance: METHYLPREDNISOLONE
  13. AURALGAN [Concomitant]
  14. FENTANYL. [Concomitant]
     Active Substance: FENTANYL
  15. TERBINAFINE HYDROCHLORIDE. [Concomitant]
     Active Substance: TERBINAFINE HYDROCHLORIDE
  16. CRESEMBA [Concomitant]
     Active Substance: ISAVUCONAZONIUM SULFATE
  17. AMBIEN [Concomitant]
     Active Substance: ZOLPIDEM TARTRATE
  18. NEXIUM [Suspect]
     Active Substance: ESOMEPRAZOLE MAGNESIUM
     Indication: GASTROOESOPHAGEAL REFLUX DISEASE
     Dosage: 15.0MG UNKNOWN
     Route: 048
     Dates: end: 2013
  19. PREVACID [Suspect]
     Active Substance: LANSOPRAZOLE
     Indication: GASTROOESOPHAGEAL REFLUX DISEASE
     Route: 065
     Dates: start: 198909, end: 201303
  20. METOPROLOL. [Concomitant]
     Active Substance: METOPROLOL
  21. GABAPENTIN. [Concomitant]
     Active Substance: GABAPENTIN
  22. CIMETIDINE [Concomitant]
     Active Substance: CIMETIDINE
  23. CYCLOBENZAPRINE. [Concomitant]
     Active Substance: CYCLOBENZAPRINE
  24. CLINDAMYCIN. [Concomitant]
     Active Substance: CLINDAMYCIN
  25. SULFA [Concomitant]
     Active Substance: UNSPECIFIED INGREDIENT
  26. NITROGLYCERIN. [Concomitant]
     Active Substance: NITROGLYCERIN
  27. ROCEPHIN [Concomitant]
     Active Substance: CEFTRIAXONE SODIUM
  28. HALDOL [Concomitant]
     Active Substance: HALOPERIDOL
  29. PRILOSEC [Suspect]
     Active Substance: OMEPRAZOLE MAGNESIUM
     Indication: GASTROOESOPHAGEAL REFLUX DISEASE
     Route: 048
     Dates: start: 198909, end: 201303
  30. KEFLEX [Concomitant]
     Active Substance: CEPHALEXIN
  31. PREDNISONE. [Concomitant]
     Active Substance: PREDNISONE
  32. FLEXERIL [Concomitant]
     Active Substance: CYCLOBENZAPRINE HYDROCHLORIDE
  33. SOMA [Concomitant]
     Active Substance: CARISOPRODOL
  34. SULFAMETHOXAZOLE [Concomitant]
     Active Substance: SULFAMETHOXAZOLE
  35. COMBIVENT [Concomitant]
     Active Substance: ALBUTEROL SULFATE\IPRATROPIUM BROMIDE
  36. POTASSIUM CITRATE. [Concomitant]
     Active Substance: POTASSIUM CITRATE
  37. DICYCLOMINE [Concomitant]
     Active Substance: DICYCLOMINE HYDROCHLORIDE
  38. ZOSYN [Concomitant]
     Active Substance: PIPERACILLIN SODIUM\TAZOBACTAM SODIUM
  39. SENNA [Concomitant]
     Active Substance: SENNA LEAF\SENNOSIDES\SENNOSIDES A AND B
  40. DONNATAL [Concomitant]
     Active Substance: ATROPINE SULFATE\HYOSCYAMINE SULFATE\PHENOBARBITAL\SCOPOLAMINE HYDROBROMIDE
  41. VERAPAMIL [Concomitant]
     Active Substance: VERAPAMIL HYDROCHLORIDE
  42. IBUPROFEN. [Concomitant]
     Active Substance: IBUPROFEN
     Indication: PAIN
  43. MINERIN [Concomitant]
  44. ANEXSIA [Concomitant]
     Active Substance: ACETAMINOPHEN\HYDROCODONE BITARTRATE
  45. LORATADINE. [Concomitant]
     Active Substance: LORATADINE
  46. MORPHINE [Concomitant]
     Active Substance: MORPHINE
  47. FLUNISOLIDE. [Concomitant]
     Active Substance: FLUNISOLIDE
  48. BACLOFEN. [Concomitant]
     Active Substance: BACLOFEN
  49. TIOTROPRIUM [Concomitant]
     Active Substance: TIOTROPIUM
  50. NICOTINE. [Concomitant]
     Active Substance: NICOTINE
  51. TESSLON PERLES [Concomitant]
  52. VERSED [Concomitant]
     Active Substance: MIDAZOLAM HYDROCHLORIDE
  53. PRILOSEC OTC [Suspect]
     Active Substance: OMEPRAZOLE MAGNESIUM
     Indication: GASTROOESOPHAGEAL REFLUX DISEASE
     Route: 048
     Dates: start: 198909, end: 201303
  54. BENADRYL [Concomitant]
     Active Substance: DIPHENHYDRAMINE HYDROCHLORIDE
     Indication: PAIN
  55. PEPCID [Concomitant]
     Active Substance: FAMOTIDINE
  56. HYDROXYZINE [Concomitant]
     Active Substance: HYDROXYZINE HYDROCHLORIDE
  57. PROPRANOLOL [Concomitant]
     Active Substance: PROPRANOLOL HYDROCHLORIDE
  58. EURAX [Concomitant]
     Active Substance: CROTAMITON
  59. MYLANTA [Concomitant]
     Active Substance: ALUMINUM HYDROXIDE\DIMETHICONE\MAGNESIUM HYDROXIDE
  60. PHENYLGESICS [Concomitant]
  61. MAGNESIUM OXIDE. [Concomitant]
     Active Substance: MAGNESIUM OXIDE
  62. METOPROLOL TARTRATE. [Concomitant]
     Active Substance: METOPROLOL TARTRATE
  63. PHOSLO [Concomitant]
     Active Substance: CALCIUM ACETATE
  64. DEXTROSE. [Concomitant]
     Active Substance: DEXTROSE
  65. SPIRIVA [Concomitant]
     Active Substance: TIOTROPIUM BROMIDE MONOHYDRATE
  66. MELATONIN [Concomitant]
     Active Substance: MELATONIN
  67. PRILOSEC OTC [Suspect]
     Active Substance: OMEPRAZOLE MAGNESIUM
     Indication: GASTROOESOPHAGEAL REFLUX DISEASE
     Route: 048
  68. ANTACID [Concomitant]
     Active Substance: ALUMINUM HYDROXIDE\CALCIUM CARBONATE\DIMETHICONE\MAGNESIUM HYDROXIDE
  69. FLUNSIOLIDE [Concomitant]
  70. ALLEGRA [Concomitant]
     Active Substance: FEXOFENADINE HYDROCHLORIDE
  71. AUGMENTIN [Concomitant]
     Active Substance: AMOXICILLIN\CLAVULANATE POTASSIUM
  72. TRAZODONE [Concomitant]
     Active Substance: TRAZODONE HYDROCHLORIDE
  73. IRON [Concomitant]
     Active Substance: IRON
  74. IMODIUM [Concomitant]
     Active Substance: LOPERAMIDE HYDROCHLORIDE
  75. CALAN [Concomitant]
     Active Substance: VERAPAMIL HYDROCHLORIDE
  76. RESTORIL [Concomitant]
     Active Substance: TEMAZEPAM
  77. PHENERGAN [Concomitant]
     Active Substance: PROMETHAZINE HYDROCHLORIDE
  78. FLOMAX [Concomitant]
     Active Substance: TAMSULOSIN HYDROCHLORIDE
  79. PYRIDIUM [Concomitant]
     Active Substance: PHENAZOPYRIDINE
  80. FINASTERIDE. [Concomitant]
     Active Substance: FINASTERIDE
  81. NEXIUM [Suspect]
     Active Substance: ESOMEPRAZOLE MAGNESIUM
     Indication: GASTROOESOPHAGEAL REFLUX DISEASE
     Route: 048
     Dates: start: 198909, end: 201303
  82. PREVACID [Suspect]
     Active Substance: LANSOPRAZOLE
     Indication: GASTROOESOPHAGEAL REFLUX DISEASE
     Dosage: 15.0MG UNKNOWN
     Route: 065
     Dates: end: 2013
  83. TYLENOL [Concomitant]
     Active Substance: ACETAMINOPHEN
     Indication: PAIN
  84. NASOCORT [Concomitant]
     Active Substance: BUDESONIDE
  85. SEPTRA [Concomitant]
     Active Substance: SULFAMETHOXAZOLE\TRIMETHOPRIM
  86. EPINEPHRINE. [Concomitant]
     Active Substance: EPINEPHRINE
  87. DILAUDID [Concomitant]
     Active Substance: HYDROMORPHONE HYDROCHLORIDE
  88. ACYCLOVIR. [Concomitant]
     Active Substance: ACYCLOVIR
  89. ROBITUSSIN (GUAIFENESIN) [Concomitant]
     Active Substance: GUAIFENESIN
  90. HEPARIN [Concomitant]
     Active Substance: HEPARIN SODIUM
  91. CEFPODOXIME [Concomitant]
     Active Substance: CEFPODOXIME
  92. MIRALAX [Concomitant]
     Active Substance: POLYETHYLENE GLYCOL 3350
  93. NARCAN [Concomitant]
     Active Substance: NALOXONE HYDROCHLORIDE
  94. NALOXONE [Concomitant]
     Active Substance: NALOXONE
  95. KETAMINE [Concomitant]
     Active Substance: KETAMINE
  96. PRILOSEC [Suspect]
     Active Substance: OMEPRAZOLE MAGNESIUM
     Indication: GASTROOESOPHAGEAL REFLUX DISEASE
     Dosage: 20.0MG UNKNOWN
     Route: 048
     Dates: start: 1989, end: 2017
  97. AMITRIPTYLINE [Concomitant]
     Active Substance: AMITRIPTYLINE
  98. FLEXAPRIL [Concomitant]
  99. ERYTHROMYCIN. [Concomitant]
     Active Substance: ERYTHROMYCIN

REACTIONS (3)
  - Renal failure [Unknown]
  - Chronic kidney disease [Not Recovered/Not Resolved]
  - Acute kidney injury [Unknown]

NARRATIVE: CASE EVENT DATE: 1992
